FAERS Safety Report 9925772 (Version 1)
Quarter: 2014Q1

REPORT INFORMATION
  Report Type: Spontaneous
  Country: IT (occurrence: IT)
  Receive Date: 20140226
  Receipt Date: 20140226
  Transmission Date: 20141002
  Serious: Yes (Other)
  Sender: FDA-Public Use
  Company Number: IT-TEVA-463582ISR

PATIENT
  Age: 80 Year
  Sex: Male
  Weight: 85 kg

DRUGS (1)
  1. OLANZAPINA TEVA 10 MG [Suspect]
     Indication: MANIA
     Dosage: 20 MILLIGRAM DAILY;
     Route: 048
     Dates: start: 20131110

REACTIONS (2)
  - Adjustment disorder with disturbance of conduct [Recovered/Resolved]
  - Product substitution issue [Unknown]
